FAERS Safety Report 8657447 (Version 3)
Quarter: 2013Q1

REPORT INFORMATION
  Report Type: Spontaneous
  Country: JP (occurrence: None)
  Receive Date: 20120625
  Receipt Date: 20130304
  Transmission Date: 20140127
  Serious: Yes (Death, Hospitalization, Other)
  Sender: FDA-Public Use
  Company Number: ADR-2012-01150

PATIENT
  Age: 73 Year
  Sex: Male

DRUGS (2)
  1. BACLOFEN [Suspect]
     Dosage: SEE B5
  2. ARICEPT TABLETS, SODIUM CHLORIDE [Concomitant]

REACTIONS (9)
  - Muscle spasms [None]
  - Sepsis [None]
  - Urinary tract infection [None]
  - Disseminated intravascular coagulation [None]
  - Dementia [None]
  - Disease complication [None]
  - Hyponatraemia [None]
  - Respiratory failure [None]
  - Hypotension [None]
